FAERS Safety Report 7423138-3 (Version None)
Quarter: 2011Q2

REPORT INFORMATION
  Report Type: 
  Country: None (occurrence: None)
  Receive Date: 20110419
  Receipt Date: 20110406
  Transmission Date: 20111010
  Serious: Yes (Death)
  Sender: FDA-Public Use
  Company Number: UG-BAXTER-2011BH010365

PATIENT
  Age: 5 Year
  Sex: Male
  Weight: 14 kg

DRUGS (3)
  1. HUMAN ALBUMIN IMMUNO 5% [Suspect]
     Indication: FLUID REPLACEMENT
     Route: 065
     Dates: start: 20090922, end: 20090922
  2. QUININE SULFATE [Concomitant]
     Indication: PRODUCT USED FOR UNKNOWN INDICATION
     Route: 065
  3. DIAZEPAM [Concomitant]
     Indication: CONVULSION
     Route: 065

REACTIONS (3)
  - INTRACRANIAL PRESSURE INCREASED [None]
  - RESPIRATORY DISORDER [None]
  - CONVULSION [None]
